FAERS Safety Report 7437871-0 (Version None)
Quarter: 2011Q2

REPORT INFORMATION
  Report Type: 
  Country: None (occurrence: None)
  Receive Date: 20110426
  Receipt Date: 20110420
  Transmission Date: 20111010
  Serious: Yes (Hospitalization)
  Sender: FDA-Public Use
  Company Number: A0924435A

PATIENT
  Age: 66 Year
  Sex: Female

DRUGS (1)
  1. TYKERB [Suspect]
     Dosage: 1000MG PER DAY
     Route: 048

REACTIONS (5)
  - CYSTITIS [None]
  - DIARRHOEA [None]
  - VOMITING [None]
  - CONFUSIONAL STATE [None]
  - DEHYDRATION [None]
